FAERS Safety Report 9091950 (Version 2)
Quarter: 2013Q1

REPORT INFORMATION
  Report Type: Spontaneous
  Country: BR (occurrence: BR)
  Receive Date: 20130219
  Receipt Date: 20130315
  Transmission Date: 20140127
  Serious: Yes (Other)
  Sender: FDA-Public Use
  Company Number: BR-AMGEN-BRASP2012016826

PATIENT
  Age: 39 Year
  Sex: Male
  Weight: 116 kg

DRUGS (10)
  1. ENBREL [Suspect]
     Indication: ARTHRITIS
     Dosage: 1 APPLICATION (50 MG), WEEKLY
     Route: 058
     Dates: start: 201202, end: 20121010
  2. ENBREL [Suspect]
     Dosage: 50 MG, QWK
     Route: 058
     Dates: start: 201211
  3. TETANUS TOXIN [Suspect]
     Indication: PRODUCT USED FOR UNKNOWN INDICATION
     Dosage: UNK
     Route: 065
     Dates: start: 20120308
  4. VOLTAREN [Suspect]
     Indication: PRODUCT USED FOR UNKNOWN INDICATION
     Dosage: UNK
     Dates: start: 20120308
  5. TRAMAL [Suspect]
     Indication: PAIN
     Dosage: 1 CAPSULE OR TABLET (50MG), 4X/DAY (EVERY 6 HOURS)
     Route: 048
  6. BENERVA [Concomitant]
     Indication: PRODUCT USED FOR UNKNOWN INDICATION
     Dosage: UNK,3 TIME A DAY
  7. GABAPENTIN [Concomitant]
     Indication: PAIN
     Dosage: 1 TABLET OF CAPSULE (300 MG), 3X/DAY (EVERY 8 HOUS)
     Route: 065
  8. IBUPROFEN [Concomitant]
     Indication: PAIN
     Dosage: 1 CAPSULE OR TABLET (600MG) 3X/DAY (EVERY 8 HOURS)
     Route: 065
  9. PREDNISONE [Concomitant]
     Indication: PRODUCT USED FOR UNKNOWN INDICATION
     Dosage: UNK, ONCE A DAY
  10. SULFASALAZINE [Concomitant]
     Indication: PAIN
     Dosage: 1 CAPSULE OR TABLET (500MG), 3X/DAY (EVERY 8 HOURS)
     Route: 065

REACTIONS (25)
  - Sensory loss [Unknown]
  - Joint lock [Not Recovered/Not Resolved]
  - Insomnia [Not Recovered/Not Resolved]
  - Swelling [Not Recovered/Not Resolved]
  - Oesophagitis [Not Recovered/Not Resolved]
  - Mineral deficiency [Unknown]
  - Infrequent bowel movements [Not Recovered/Not Resolved]
  - Movement disorder [Not Recovered/Not Resolved]
  - Skin discolouration [Unknown]
  - Decreased appetite [Not Recovered/Not Resolved]
  - Feeling hot [Unknown]
  - Peripheral coldness [Not Recovered/Not Resolved]
  - Rash macular [Not Recovered/Not Resolved]
  - Generalised erythema [Not Recovered/Not Resolved]
  - Pain [Not Recovered/Not Resolved]
  - Burning sensation [Not Recovered/Not Resolved]
  - Weight decreased [Not Recovered/Not Resolved]
  - Feeling abnormal [Not Recovered/Not Resolved]
  - Vomiting [Not Recovered/Not Resolved]
  - Paraesthesia [Unknown]
  - Pain in extremity [Not Recovered/Not Resolved]
  - Hypoaesthesia [Unknown]
  - Cyanosis [Not Recovered/Not Resolved]
  - Drug effect decreased [Not Recovered/Not Resolved]
  - Demyelinating polyneuropathy [Unknown]
